FAERS Safety Report 6039236-5 (Version None)
Quarter: 2009Q1

REPORT INFORMATION
  Report Type: 
  Country: None (occurrence: None)
  Receive Date: 20090115
  Receipt Date: 20090107
  Transmission Date: 20090719
  Serious: Yes (Other)
  Sender: FDA-Public Use
  Company Number: PHEH2006US03865

PATIENT
  Sex: Male

DRUGS (22)
  1. ZOMETA [Suspect]
     Indication: MULTIPLE MYELOMA
     Dosage: 4 MG, QMO
     Route: 042
     Dates: start: 20030101, end: 20080401
  2. ZOMETA [Suspect]
     Dosage: 4 MG Q THREE WEEKS
     Dates: start: 20060303
  3. ASPIRIN [Concomitant]
     Indication: THROMBOSIS PROPHYLAXIS
     Dosage: 81 MG, QD
     Route: 048
     Dates: start: 20030101
  4. VENOSTAT [Concomitant]
     Dosage: ONE TABLET QD
     Dates: start: 20030101
  5. MELPHALAN [Concomitant]
     Indication: MULTIPLE MYELOMA
     Dosage: 0.25 MG/KG X 4 DAYS MONTHLY 6 CYCLES
     Dates: start: 20030201, end: 20030418
  6. PREDNISONE TAB [Concomitant]
     Indication: MULTIPLE MYELOMA
     Dosage: 60 MG QD X 4 DAYS MONTHLY X 6 CYLES
     Dates: start: 20030201, end: 20060418
  7. VELCADE [Concomitant]
     Indication: MULTIPLE MYELOMA
     Dosage: 1.8 MG IVP D1, D4,D8,D11 Q 21 DAYS
     Route: 042
     Dates: start: 20051202, end: 20060403
  8. DOXIL [Concomitant]
     Indication: MULTIPLE MYELOMA
     Dosage: 9 MG IV D1, D4,D8,D11 Q 21 DAYS
     Route: 042
     Dates: start: 20051202, end: 20060403
  9. DECADRON [Concomitant]
     Indication: MULTIPLE MYELOMA
     Dosage: 40 MG IV D1, D4,D8,D11 Q 21 DAYS
     Route: 042
     Dates: start: 20051202, end: 20060403
  10. MEDROL [Concomitant]
  11. THALIDOMIDE [Concomitant]
  12. ACYCLOVIR [Concomitant]
  13. LYSINE [Concomitant]
  14. VITAMIN B12 NOS W/VITAMIN B6 [Concomitant]
  15. COQ10 [Concomitant]
  16. ASTELIN [Concomitant]
  17. CHLORHEXIDINE GLUCONATE [Concomitant]
  18. COMPAZINE [Concomitant]
  19. LASIX [Concomitant]
  20. ZOLOFT [Concomitant]
  21. VICODIN [Concomitant]
  22. BUPROPION HCL [Concomitant]

REACTIONS (19)
  - ABSCESS [None]
  - ANHIDROSIS [None]
  - ARTHRALGIA [None]
  - BACK PAIN [None]
  - BONE DISORDER [None]
  - DEEP VEIN THROMBOSIS [None]
  - ERYTHEMA [None]
  - FRACTURE [None]
  - GLOSSITIS [None]
  - LOCAL SWELLING [None]
  - ORAL DISORDER [None]
  - OSTEONECROSIS [None]
  - PAIN IN JAW [None]
  - PLASMACYTOMA [None]
  - PNEUMONIA [None]
  - PURULENT DISCHARGE [None]
  - RADIOTHERAPY [None]
  - SOFT TISSUE INFECTION [None]
  - VERTEBROPLASTY [None]
